FAERS Safety Report 9217299 (Version 1)
Quarter: 2013Q2

REPORT INFORMATION
  Report Type: Spontaneous
  Country: US (occurrence: US)
  Receive Date: 20130408
  Receipt Date: 20130408
  Transmission Date: 20140414
  Serious: Yes (Other)
  Sender: FDA-Public Use
  Company Number: US-B.I. PHARMACEUTICALS,INC./RIDGEFIELD-2013-BI-08778BP

PATIENT
  Age: 67 Year
  Sex: Female
  Weight: 72 kg

DRUGS (4)
  1. DULCOLAX STOOL SOFTENER [Suspect]
     Indication: FAECES HARD
     Route: 048
     Dates: start: 201301, end: 2013
  2. DULCOLAX TABLETS [Suspect]
     Indication: CONSTIPATION
     Route: 048
     Dates: start: 2011
  3. LINZESS [Concomitant]
     Indication: LAXATIVE SUPPORTIVE CARE
     Dates: start: 201303
  4. MEGACE [Concomitant]
     Indication: DECREASED APPETITE
     Dates: start: 201303

REACTIONS (5)
  - Abnormal loss of weight [Not Recovered/Not Resolved]
  - Abdominal pain upper [Not Recovered/Not Resolved]
  - Nausea [Not Recovered/Not Resolved]
  - Alopecia [Not Recovered/Not Resolved]
  - Constipation [Recovered/Resolved]
